FAERS Safety Report 6490209-8 (Version None)
Quarter: 2009Q4

REPORT INFORMATION
  Report Type: 
  Country: None (occurrence: None)
  Receive Date: 20091211
  Receipt Date: 20091202
  Transmission Date: 20100525
  Serious: Yes (Disabling)
  Sender: FDA-Public Use
  Company Number: CA-ASTRAZENECA-2009SE29914

PATIENT
  Age: 656 Month
  Sex: Female

DRUGS (3)
  1. LOSEC TABLETS [Suspect]
     Indication: GASTROOESOPHAGEAL REFLUX DISEASE
     Route: 048
     Dates: start: 19990101
  2. AVAPRO [Concomitant]
  3. NAPROSYN [Concomitant]

REACTIONS (3)
  - MUSCULAR WEAKNESS [None]
  - PALPITATIONS [None]
  - RESPIRATORY DISORDER [None]
